FAERS Safety Report 13227796 (Version 1)
Quarter: 2017Q1

REPORT INFORMATION
  Report Type: Spontaneous
  Country: US (occurrence: US)
  Receive Date: 20170213
  Receipt Date: 20170213
  Transmission Date: 20170428
  Serious: Yes (Death, Hospitalization, Other)
  Sender: FDA-Public Use
  Company Number: US-SA-2017SA023662

PATIENT
  Age: 93 Year
  Sex: Male
  Weight: 90.7 kg

DRUGS (4)
  1. ENOXAPARIN SODIUM. [Suspect]
     Active Substance: ENOXAPARIN SODIUM
     Route: 065
     Dates: start: 20161229, end: 20170102
  2. COUMADIN [Suspect]
     Active Substance: WARFARIN SODIUM
     Route: 065
  3. LASIX [Suspect]
     Active Substance: FUROSEMIDE
     Route: 065
  4. LIPITOR [Suspect]
     Active Substance: ATORVASTATIN CALCIUM
     Route: 065

REACTIONS (2)
  - Cardiac failure congestive [Fatal]
  - Critical illness [Unknown]

NARRATIVE: CASE EVENT DATE: 20170103
